FAERS Safety Report 25936182 (Version 1)
Quarter: 2025Q4

REPORT INFORMATION
  Report Type: Spontaneous
  Country: US (occurrence: None)
  Receive Date: 20251017
  Receipt Date: 20251017
  Transmission Date: 20260117
  Serious: No
  Sender: FDA-CTU
  Company Number: None

PATIENT
  Age: 51 Year
  Sex: Female

DRUGS (5)
  1. KISQALI [Suspect]
     Active Substance: RIBOCICLIB SUCCINATE
     Indication: Breast cancer female
     Dosage: 200MG ORAL
     Route: 048
     Dates: start: 202507
  2. LETROZOLE [Concomitant]
     Active Substance: LETROZOLE
  3. VITAMINS [Concomitant]
     Active Substance: VITAMINS
  4. AMOXIL [Concomitant]
     Active Substance: AMOXICILLIN
  5. IBUPROFEN [Concomitant]
     Active Substance: IBUPROFEN

REACTIONS (2)
  - Peripheral swelling [None]
  - Vision blurred [None]

NARRATIVE: CASE EVENT DATE: 20250728
